FAERS Safety Report 6633385-6 (Version None)
Quarter: 2010Q1

REPORT INFORMATION
  Report Type: 
  Country: None (occurrence: None)
  Receive Date: 20100312
  Receipt Date: 20100225
  Transmission Date: 20100710
  Serious: Yes (Life-Threatening, Hospitalization, Other)
  Sender: FDA-Public Use
  Company Number: CH-AMGEN-QUU395434

PATIENT
  Age: 7 Year
  Sex: Male

DRUGS (34)
  1. NEUPOGEN [Suspect]
     Indication: DRUG USE FOR UNKNOWN INDICATION
     Route: 058
     Dates: start: 20100104, end: 20100109
  2. ROCEPHIN [Suspect]
     Route: 040
     Dates: start: 20100110
  3. BACTRIM [Suspect]
     Route: 041
     Dates: start: 20100110
  4. LIQUEMINE [Suspect]
     Route: 040
     Dates: start: 20100110, end: 20100115
  5. CYTOSAR-U [Suspect]
     Dates: start: 20100104, end: 20100104
  6. SINTROM [Suspect]
     Route: 048
     Dates: start: 20080101, end: 20100109
  7. GARAMYCIN [Suspect]
     Route: 040
     Dates: start: 20100110
  8. PREDNISONE [Concomitant]
     Dates: start: 20040101, end: 20100109
  9. ZOFRAN [Concomitant]
     Dates: start: 20100104, end: 20100104
  10. MAXITROL [Concomitant]
     Dates: start: 20100104, end: 20100110
  11. ASPIRIN [Concomitant]
  12. ANTRA [Concomitant]
     Dates: start: 20060101, end: 20100110
  13. CALCIMAGON [Concomitant]
  14. NEXIUM [Concomitant]
     Dates: start: 20100110
  15. SOLU-MEDROL [Concomitant]
     Dates: start: 20100109, end: 20100110
  16. PREDNISOLONE [Concomitant]
     Dates: start: 20100110
  17. NORCURON [Concomitant]
     Dates: start: 20100110, end: 20100112
  18. ACETYLCYSTEINE [Concomitant]
     Dates: start: 20100110
  19. DORMICUM ^ROCHE^ [Concomitant]
     Dates: start: 20100110, end: 20100114
  20. MILRINONE LACTATE [Concomitant]
     Dates: start: 20100111, end: 20100115
  21. MORPHINE [Concomitant]
     Dates: start: 20100110, end: 20100114
  22. CO-DAFALGAN [Concomitant]
     Dates: start: 20100109, end: 20100109
  23. TAMIFLU [Concomitant]
     Dates: start: 20100110, end: 20100112
  24. LASIX [Concomitant]
     Dates: start: 20100110
  25. ALDACTONE [Concomitant]
     Dates: start: 20100110, end: 20100110
  26. SOLDACTONE [Concomitant]
     Dates: start: 20100111
  27. PERFALGAN [Concomitant]
     Dates: start: 20100110
  28. DIPYRONE [Concomitant]
     Dates: start: 20100110, end: 20100111
  29. VANCOMYCIN HCL [Concomitant]
     Dates: start: 20100110, end: 20100111
  30. DOPAMINE HCL [Concomitant]
     Dates: start: 20100110, end: 20100115
  31. NORADRENALINE [Concomitant]
     Dates: start: 20100110, end: 20100119
  32. ACTEMRA [Concomitant]
     Dates: start: 20080714
  33. DEXAMETHASONE/NEOMYCIN [Concomitant]
     Route: 047
  34. POLYMYCIN B SULFATE [Concomitant]
     Route: 047

REACTIONS (7)
  - ACUTE RESPIRATORY DISTRESS SYNDROME [None]
  - CARDIAC FAILURE [None]
  - HEPATOCELLULAR INJURY [None]
  - PERITONITIS [None]
  - PNEUMOTHORAX [None]
  - RESPIRATORY FAILURE [None]
  - THROMBOCYTOPENIA [None]
